FAERS Safety Report 7281644-9 (Version None)
Quarter: 2011Q1

REPORT INFORMATION
  Report Type: 
  Country: None (occurrence: None)
  Receive Date: 20110208
  Receipt Date: 20110126
  Transmission Date: 20110831
  Serious: Yes (Other)
  Sender: FDA-Public Use
  Company Number: US-ELI_LILLY_AND_COMPANY-US201101006824

PATIENT
  Age: 10 Year
  Sex: Female

DRUGS (5)
  1. STRATTERA [Suspect]
     Indication: ATTENTION DEFICIT/HYPERACTIVITY DISORDER
     Dosage: 25 MG, DAILY (1/D)
  2. STRATTERA [Suspect]
     Dosage: 10 MG, DAILY (1/D)
  3. STRATTERA [Suspect]
     Dosage: 25 MG, DAILY (1/D)
  4. STRATTERA [Suspect]
     Dosage: 10 MG, DAILY (1/D)
  5. STRATTERA [Suspect]
     Dosage: 18 MG, DAILY (1/D)

REACTIONS (1)
  - ATRIAL FLUTTER [None]
